FAERS Safety Report 11330018 (Version 2)
Quarter: 2015Q4

REPORT INFORMATION
  Report Type: Spontaneous
  Country: TR (occurrence: TR)
  Receive Date: 20150803
  Receipt Date: 20151001
  Transmission Date: 20160304
  Serious: Yes (Death)
  Sender: FDA-Public Use
  Company Number: TR-BEH-2015052861

PATIENT
  Age: 9 Year
  Sex: Male

DRUGS (1)
  1. ANTI-D [Suspect]
     Active Substance: HUMAN RHO(D) IMMUNE GLOBULIN
     Indication: IMMUNE THROMBOCYTOPENIC PURPURA

REACTIONS (2)
  - Drug ineffective for unapproved indication [Unknown]
  - Gastrointestinal haemorrhage [Fatal]
